FAERS Safety Report 17809353 (Version 1)
Quarter: 2020Q2

REPORT INFORMATION
  Report Type: Spontaneous
  Country: CN (occurrence: CN)
  Receive Date: 20200521
  Receipt Date: 20200521
  Transmission Date: 20200714
  Serious: Yes (Other)
  Sender: FDA-Public Use
  Company Number: CN-ROCHE-2605291

PATIENT
  Age: 63 Year
  Sex: Female

DRUGS (13)
  1. AVASTIN [Suspect]
     Active Substance: BEVACIZUMAB
     Route: 065
     Dates: start: 20180326
  2. AVASTIN [Suspect]
     Active Substance: BEVACIZUMAB
     Indication: BRONCHIAL CARCINOMA
     Route: 065
     Dates: start: 20180224
  3. AVASTIN [Suspect]
     Active Substance: BEVACIZUMAB
     Route: 065
     Dates: start: 20180509
  4. AVASTIN [Suspect]
     Active Substance: BEVACIZUMAB
     Route: 065
     Dates: start: 20180817
  5. PEMETREXED DISODIUM [Suspect]
     Active Substance: PEMETREXED DISODIUM
     Route: 065
     Dates: start: 20180509
  6. CARBOPLATIN. [Suspect]
     Active Substance: CARBOPLATIN
     Indication: BRONCHIAL CARCINOMA
     Route: 065
     Dates: start: 20180224
  7. CARBOPLATIN. [Suspect]
     Active Substance: CARBOPLATIN
     Route: 065
     Dates: start: 20180328
  8. AVASTIN [Suspect]
     Active Substance: BEVACIZUMAB
     Route: 065
     Dates: start: 20180920
  9. CARBOPLATIN. [Suspect]
     Active Substance: CARBOPLATIN
     Route: 065
     Dates: start: 20180509
  10. PEMETREXED DISODIUM [Suspect]
     Active Substance: PEMETREXED DISODIUM
     Route: 065
     Dates: start: 20180920
  11. PEMETREXED DISODIUM [Suspect]
     Active Substance: PEMETREXED DISODIUM
     Indication: BRONCHIAL CARCINOMA
     Route: 065
     Dates: start: 20180224
  12. PEMETREXED DISODIUM [Suspect]
     Active Substance: PEMETREXED DISODIUM
     Route: 065
     Dates: start: 20180817
  13. PEMETREXED DISODIUM [Suspect]
     Active Substance: PEMETREXED DISODIUM
     Route: 065
     Dates: start: 20180328

REACTIONS (1)
  - Bone marrow failure [Unknown]
